FAERS Safety Report 8016643-2 (Version None)
Quarter: 2012Q1

REPORT INFORMATION
  Report Type: 
  Country: None (occurrence: None)
  Receive Date: 20120101
  Receipt Date: 20111223
  Transmission Date: 20120608
  Serious: Yes (Other)
  Sender: FDA-Public Use
  Company Number: US-BAYER-2011-123705

PATIENT
  Sex: Female
  Weight: 90.703 kg

DRUGS (2)
  1. BAYER EXTRA STRENGTH BACK + BODY PAIN [Suspect]
     Dosage: 2 DF, QD
     Route: 048
  2. ASPIRIN [Concomitant]

REACTIONS (2)
  - DRUG DEPENDENCE [None]
  - EUPHORIC MOOD [None]
